FAERS Safety Report 6608985-X (Version None)
Quarter: 2010Q1

REPORT INFORMATION
  Report Type: 
  Country: None (occurrence: None)
  Receive Date: 20100226
  Receipt Date: 20100226
  Transmission Date: 20100710
  Serious: Yes (Hospitalization)
  Sender: FDA-Public Use
  Company Number: None

PATIENT
  Age: 22 Year
  Sex: Male

DRUGS (1)
  1. COCAINE [Suspect]
     Indication: DRUG ABUSE
     Dosage: RESPIRATORY 054
     Route: 055

REACTIONS (7)
  - COAGULOPATHY [None]
  - DRUG ABUSE [None]
  - DRUG SCREEN POSITIVE [None]
  - JAUNDICE [None]
  - LOSS OF CONSCIOUSNESS [None]
  - MENTAL STATUS CHANGES [None]
  - RENAL FAILURE [None]
